FAERS Safety Report 11969543 (Version 1)
Quarter: 2016Q1

REPORT INFORMATION
  Report Type: Spontaneous
  Country: US (occurrence: US)
  Receive Date: 20160128
  Receipt Date: 20160128
  Transmission Date: 20160526
  Serious: Yes (Other)
  Sender: FDA-Public Use
  Company Number: US-ACTAVIS-2016-01752

PATIENT
  Age: 56 Year
  Sex: Male

DRUGS (3)
  1. DOXYCYCLINE (ACTAVIS LABORATORIES FL) [Suspect]
     Active Substance: DOXYCYCLINE
     Indication: LYME DISEASE
     Dosage: UNK
     Route: 065
  2. CEFUROXIME SODIUM (WATSON LABORATORIES) [Suspect]
     Active Substance: CEFUROXIME SODIUM
     Indication: ARTHROPOD BITE
     Dosage: UNK
     Route: 065
  3. CEFUROXIME SODIUM (WATSON LABORATORIES) [Suspect]
     Active Substance: CEFUROXIME SODIUM
     Indication: LYME DISEASE

REACTIONS (2)
  - Drug-induced liver injury [Recovering/Resolving]
  - Drug intolerance [Unknown]
